FAERS Safety Report 7522020-0 (Version None)
Quarter: 2011Q2

REPORT INFORMATION
  Report Type: 
  Country: None (occurrence: None)
  Receive Date: 20110523
  Receipt Date: 20110516
  Transmission Date: 20111010
  Serious: Yes (Other)
  Sender: FDA-Public Use
  Company Number: 2010026809

PATIENT
  Age: 81 Year
  Sex: Male

DRUGS (4)
  1. ALBUMIN (HUMAN) [Suspect]
     Dates: start: 20081007, end: 20081007
  2. ALBUMIN (HUMAN) [Suspect]
     Dates: start: 20081012, end: 20081012
  3. ALBUMIN (HUMAN) [Suspect]
     Dates: start: 20081008, end: 20081008
  4. ALBUMIN (HUMAN) [Suspect]
     Dosage: INTRAVENOUS
     Route: 042
     Dates: start: 20081007, end: 20081007

REACTIONS (2)
  - HEPATITIS C VIRUS TEST POSITIVE [None]
  - TRANSMISSION OF AN INFECTIOUS AGENT VIA A MEDICINAL PRODUCT [None]
